FAERS Safety Report 18817431 (Version 1)
Quarter: 2021Q1

REPORT INFORMATION
  Report Type: Spontaneous
  Country: CO (occurrence: CO)
  Receive Date: 20210201
  Receipt Date: 20210201
  Transmission Date: 20210419
  Serious: Yes (Life-Threatening, Hospitalization, Other)
  Sender: FDA-Public Use
  Company Number: CO-PFIZER INC-2021070477

PATIENT
  Age: 37 Year
  Sex: Female

DRUGS (1)
  1. REAMPLA [Suspect]
     Active Substance: PALBOCICLIB
     Indication: BREAST CANCER METASTATIC
     Dosage: 125 MG
     Route: 048
     Dates: start: 201909, end: 202010

REACTIONS (15)
  - Anaemia [Unknown]
  - Muscle spasms [Not Recovered/Not Resolved]
  - Obstructive defaecation [Unknown]
  - Headache [Not Recovered/Not Resolved]
  - Neoplasm progression [Unknown]
  - Bone pain [Unknown]
  - Pain in extremity [Unknown]
  - Somnolence [Unknown]
  - Neck pain [Not Recovered/Not Resolved]
  - Photopsia [Unknown]
  - Feeling abnormal [Unknown]
  - Vision blurred [Not Recovered/Not Resolved]
  - Haemoglobin decreased [Unknown]
  - Pain [Unknown]
  - Fatigue [Unknown]

NARRATIVE: CASE EVENT DATE: 202005
